FAERS Safety Report 7504509-3 (Version None)
Quarter: 2011Q2

REPORT INFORMATION
  Report Type: 
  Country: None (occurrence: None)
  Receive Date: 20110525
  Receipt Date: 20110517
  Transmission Date: 20111010
  Serious: Yes (Hospitalization, Other)
  Sender: FDA-Public Use
  Company Number: US-ABBOTT-11P-163-0726720-00

PATIENT
  Sex: Male
  Weight: 74.91 kg

DRUGS (9)
  1. NIASPAN [Suspect]
     Dosage: QHS, TAKES 500MG AND 1000MG TABLETS
     Route: 048
     Dates: start: 20100101
  2. CRESTOR [Concomitant]
     Indication: PRODUCT USED FOR UNKNOWN INDICATION
  3. KRILL OIL [Concomitant]
     Indication: LIPOPROTEIN (A) INCREASED
     Route: 048
     Dates: start: 20101201
  4. NIASPAN [Suspect]
     Indication: LIPOPROTEIN (A) INCREASED
     Dosage: QHS
     Route: 048
     Dates: start: 20070501, end: 20100101
  5. RAMIPRIL [Concomitant]
     Indication: PRODUCT USED FOR UNKNOWN INDICATION
  6. EFFIENT [Concomitant]
     Indication: PRODUCT USED FOR UNKNOWN INDICATION
  7. COQ10 [Concomitant]
     Indication: PRODUCT USED FOR UNKNOWN INDICATION
  8. NICORETTE [Concomitant]
     Indication: SMOKING CESSATION THERAPY
     Dosage: CHEWS PRN
     Route: 048
     Dates: start: 20020101
  9. MULTI-VITAMIN [Concomitant]
     Indication: PRODUCT USED FOR UNKNOWN INDICATION

REACTIONS (6)
  - WEIGHT INCREASED [None]
  - PAIN [None]
  - CORONARY ARTERY REOCCLUSION [None]
  - PRURITUS [None]
  - LIPOPROTEIN (A) INCREASED [None]
  - FLUSHING [None]
